FAERS Safety Report 6941381-4 (Version None)
Quarter: 2010Q3

REPORT INFORMATION
  Report Type: 
  Country: None (occurrence: None)
  Receive Date: 20100825
  Receipt Date: 20100818
  Transmission Date: 20110219
  Serious: Yes (Death, Other)
  Sender: FDA-Public Use
  Company Number: US-MPIJNJ-2010-04383

PATIENT
  Sex: Male

DRUGS (2)
  1. VELCADE [Suspect]
     Indication: MULTIPLE MYELOMA
  2. DEXAMETHASONE [Suspect]
     Indication: MULTIPLE MYELOMA

REACTIONS (6)
  - DEATH [None]
  - GRANULOCYTOPENIA [None]
  - HEPATIC ENZYME INCREASED [None]
  - LIVER DISORDER [None]
  - PNEUMONIA [None]
  - THROMBOCYTOPENIA [None]
